FAERS Safety Report 8295057 (Version 6)
Quarter: 2014Q4

REPORT INFORMATION
  Report Type: Spontaneous
  Country: US (occurrence: US)
  Receive Date: 20111216
  Receipt Date: 20141215
  Transmission Date: 20150529
  Serious: Yes (Life-Threatening, Congenital Anomaly, Other)
  Sender: FDA-Public Use
  Company Number: US-PFIZER INC-2011289829

PATIENT
  Age: 2 Day
  Sex: Female
  Weight: 3 kg

DRUGS (10)
  1. ZOLOFT [Suspect]
     Active Substance: SERTRALINE HYDROCHLORIDE
     Dosage: 2.5 ML, 2X/DAY
     Route: 064
     Dates: start: 20100718
  2. ZOLOFT [Suspect]
     Active Substance: SERTRALINE HYDROCHLORIDE
     Indication: ANXIETY
     Dosage: 50 MG, 1X/DAY
     Route: 064
     Dates: start: 20051109
  3. SERTRALINE HCL [Suspect]
     Active Substance: SERTRALINE HYDROCHLORIDE
     Dosage: 50 MG HALF TABLET FOR 7 DAYS, THEN ONE TABLET A DAY
     Route: 064
     Dates: start: 20100604
  4. MACROBID [Concomitant]
     Active Substance: NITROFURANTOIN\NITROFURANTOIN MONOHYDRATE
     Dosage: 100 MG, 2X/DAY
     Route: 064
     Dates: start: 20100718
  5. MAALOX ANTACID [Concomitant]
     Active Substance: ALUMINUM HYDROXIDE\DIMETHICONE\MAGNESIUM HYDROXIDE
     Dosage: 30 MG, UNK
     Route: 064
     Dates: start: 20100909
  6. PRENATAL VITAMINS [Concomitant]
     Active Substance: VITAMINS
     Dosage: UNK
     Route: 064
     Dates: start: 20100909
  7. ZOLOFT [Suspect]
     Active Substance: SERTRALINE HYDROCHLORIDE
     Dosage: 100 MG, 1X/DAY
     Route: 064
     Dates: start: 20100819
  8. CALCIUM CARBONATE. [Concomitant]
     Active Substance: CALCIUM CARBONATE
     Dosage: UNK
     Route: 064
     Dates: start: 20100909
  9. ALUMINIUM /MAGNESIUM/SIMETICONE/ [Concomitant]
     Dosage: UNK
     Route: 064
     Dates: start: 20100909
  10. ZANTAC [Concomitant]
     Active Substance: RANITIDINE HYDROCHLORIDE
     Dosage: 150 MG, UNK
     Route: 064
     Dates: start: 20100909

REACTIONS (18)
  - Double outlet right ventricle [Not Recovered/Not Resolved]
  - Developmental hip dysplasia [Not Recovered/Not Resolved]
  - Pulmonary valve disease [Not Recovered/Not Resolved]
  - Transposition of the great vessels [Not Recovered/Not Resolved]
  - Pulmonary valve stenosis congenital [Not Recovered/Not Resolved]
  - Cardiac aneurysm [Not Recovered/Not Resolved]
  - Atrial septal defect [Not Recovered/Not Resolved]
  - Jaundice neonatal [Unknown]
  - Ventricular septal defect [Not Recovered/Not Resolved]
  - Congenital tricuspid valve incompetence [Not Recovered/Not Resolved]
  - Right ventricle outflow tract obstruction [Not Recovered/Not Resolved]
  - Left atrial dilatation [Not Recovered/Not Resolved]
  - Patent ductus arteriosus [Recovered/Resolved]
  - Right atrial dilatation [Not Recovered/Not Resolved]
  - Weight decrease neonatal [Unknown]
  - Maternal exposure timing unspecified [Not Recovered/Not Resolved]
  - Right ventricular hypertrophy [Not Recovered/Not Resolved]
  - Dilatation ventricular [Not Recovered/Not Resolved]

NARRATIVE: CASE EVENT DATE: 20101204
